FAERS Safety Report 16548658 (Version 1)
Quarter: 2019Q3

REPORT INFORMATION
  Report Type: Spontaneous
  Country: US (occurrence: US)
  Receive Date: 20190709
  Receipt Date: 20190709
  Transmission Date: 20191004
  Serious: No
  Sender: FDA-Public Use
  Company Number: US-IBSA PHARMA-TSO-2019-0033

PATIENT
  Age: 75 Year
  Sex: Female

DRUGS (3)
  1. TIROSINT-SOL [Suspect]
     Active Substance: LEVOTHYROXINE SODIUM
     Indication: HYPOTHYROIDISM
     Dosage: 100MCG/ML DAILY
     Route: 048
     Dates: start: 201904, end: 201904
  2. ELIQUIS [Concomitant]
     Active Substance: APIXABAN
     Indication: PRODUCT USED FOR UNKNOWN INDICATION
     Dates: start: 201811
  3. TIROSINT-SOL [Suspect]
     Active Substance: LEVOTHYROXINE SODIUM
     Indication: HYPOTHYROIDISM
     Dosage: 88MCG/ML DAILY
     Route: 048
     Dates: start: 201904

REACTIONS (8)
  - Pain in extremity [None]
  - Dyspnoea [Recovering/Resolving]
  - Laboratory test abnormal [Unknown]
  - Drug level above therapeutic [Unknown]
  - Paraesthesia [None]
  - Hypoaesthesia [None]
  - Bone pain [None]
  - Hyperthyroidism [Unknown]

NARRATIVE: CASE EVENT DATE: 2019
